FAERS Safety Report 10231825 (Version 3)
Quarter: 2014Q3

REPORT INFORMATION
  Report Type: Spontaneous
  Country: GB (occurrence: GB)
  Receive Date: 20140612
  Receipt Date: 20140801
  Transmission Date: 20150326
  Serious: Yes (Hospitalization, Other)
  Sender: FDA-Public Use
  Company Number: GB-AMGEN-GBRSP2014042430

PATIENT
  Age: 80 Year
  Sex: Male
  Weight: 86 kg

DRUGS (2)
  1. ARANESP [Suspect]
     Active Substance: DARBEPOETIN ALFA
     Indication: NEPHROGENIC ANAEMIA
     Dosage: 0.4 ML, UNK
     Route: 065
     Dates: start: 20031216
  2. AMLODIPINE                         /00972402/ [Concomitant]
     Active Substance: AMLODIPINE BESYLATE
     Dosage: 5 MG, QD

REACTIONS (22)
  - Blood creatinine increased [Unknown]
  - Hiatus hernia [Unknown]
  - Osteoarthritis [Unknown]
  - Hyperparathyroidism [Unknown]
  - Dialysis [Not Recovered/Not Resolved]
  - Retinal detachment [Unknown]
  - Malaise [Unknown]
  - Diverticulum intestinal [Unknown]
  - Hypocalcaemia [Unknown]
  - Glaucoma [Unknown]
  - Renal failure acute [Unknown]
  - Cataract [Unknown]
  - Glomerular filtration rate abnormal [Unknown]
  - Azotaemia [Unknown]
  - Tuberculosis [Unknown]
  - Gastroenteritis [Unknown]
  - Gastrooesophageal reflux disease [Unknown]
  - Deep vein thrombosis [Unknown]
  - Anaemia [Unknown]
  - Blindness [Unknown]
  - Renal failure chronic [Unknown]
  - Urinary tract disorder [Unknown]

NARRATIVE: CASE EVENT DATE: 20051031
